FAERS Safety Report 5490490-8 (Version None)
Quarter: 2007Q4

REPORT INFORMATION
  Report Type: 
  Country: None (occurrence: None)
  Receive Date: 20071017
  Receipt Date: 20071017
  Transmission Date: 20080405
  Serious: Yes (Hospitalization)
  Sender: FDA-Public Use
  Company Number: None

PATIENT
  Age: 24 Year
  Sex: Female
  Weight: 49.6 kg

DRUGS (1)
  1. CYTARABINE [Suspect]
     Indication: MENINGEAL DISORDER
     Dosage: 50MG EVERY TWO WEEKS INTH
     Route: 037
     Dates: start: 20070720, end: 20070814

REACTIONS (5)
  - ARACHNOIDITIS [None]
  - HEADACHE [None]
  - NAUSEA [None]
  - PLEOCYTOSIS [None]
  - VOMITING [None]
